FAERS Safety Report 6544649-9 (Version None)
Quarter: 2010Q1

REPORT INFORMATION
  Report Type: 
  Country: None (occurrence: None)
  Receive Date: 20100121
  Receipt Date: 20100119
  Transmission Date: 20100710
  Serious: Yes (Death)
  Sender: FDA-Public Use
  Company Number: PHEH2010US00782

PATIENT
  Sex: Male
  Weight: 53.061 kg

DRUGS (3)
  1. RECLAST [Suspect]
     Dosage: UNK
     Dates: start: 20090306, end: 20090306
  2. THEOPHYLLINE [Concomitant]
     Dosage: 200 MG, QD
     Route: 048
  3. MORPHINE [Concomitant]
     Dosage: 5-40 MG Q4 PRN

REACTIONS (1)
  - PANCREATIC CARCINOMA [None]
